FAERS Safety Report 21409878 (Version 5)
Quarter: 2023Q2

REPORT INFORMATION
  Report Type: Report from Study
  Country: US (occurrence: US)
  Receive Date: 20221005
  Receipt Date: 20230531
  Transmission Date: 20230721
  Serious: No
  Sender: FDA-Public Use
  Company Number: US-NOVARTISTESTPH-NVSC2022US222988

PATIENT
  Sex: Female
  Weight: 68.027 kg

DRUGS (1)
  1. XIIDRA [Suspect]
     Active Substance: LIFITEGRAST
     Indication: Dry eye
     Dosage: 5 ML, BID
     Route: 047

REACTIONS (2)
  - Eye disorder [Unknown]
  - Dry eye [Recovering/Resolving]
